FAERS Safety Report 10161431 (Version 2)
Quarter: 2014Q2

REPORT INFORMATION
  Report Type: Spontaneous
  Country: US (occurrence: US)
  Receive Date: 20140509
  Receipt Date: 20140509
  Transmission Date: 20141212
  Serious: No
  Sender: FDA-Public Use
  Company Number: US-TEVA-412972USA

PATIENT
  Sex: Female

DRUGS (2)
  1. CLARAVIS [Suspect]
  2. ORTHO-TRICYCLEN [Concomitant]

REACTIONS (5)
  - Bulimia nervosa [Recovering/Resolving]
  - Body dysmorphic disorder [Recovering/Resolving]
  - Emotional disorder [Unknown]
  - Crying [Unknown]
  - Body dysmorphic disorder [Unknown]
